FAERS Safety Report 17596788 (Version 2)
Quarter: 2020Q2

REPORT INFORMATION
  Report Type: Report from Study
  Country: None (occurrence: CA)
  Receive Date: 20200330
  Receipt Date: 20200530
  Transmission Date: 20200713
  Serious: Yes (Hospitalization)
  Sender: FDA-Public Use
  Company Number: CA-ABBVIE-20K-028-3339395-00

PATIENT
  Age: 52 Year
  Sex: Female

DRUGS (1)
  1. HUMIRA [Suspect]
     Active Substance: ADALIMUMAB
     Indication: CROHN^S DISEASE
     Route: 058
     Dates: start: 20160823

REACTIONS (3)
  - Crohn^s disease [Not Recovered/Not Resolved]
  - Haematochezia [Not Recovered/Not Resolved]
  - Rectal ulcer [Not Recovered/Not Resolved]

NARRATIVE: CASE EVENT DATE: 2020
